FAERS Safety Report 10431545 (Version 1)
Quarter: 2014Q3

REPORT INFORMATION
  Report Type: Spontaneous
  Country: US (occurrence: US)
  Receive Date: 20140904
  Receipt Date: 20140904
  Transmission Date: 20150326
  Serious: Yes (Death, Other)
  Sender: FDA-Public Use
  Company Number: US-BAXTER-2014BAX052276

PATIENT
  Age: 43 Year
  Sex: Female
  Weight: 63 kg

DRUGS (6)
  1. NOREPINEPHRINE [Suspect]
     Active Substance: NOREPINEPHRINE\NOREPINEPHRINE BITARTRATE
     Indication: HYPOTENSION
     Route: 065
  2. DOBUTAMINE HYDROCHLORIDE IN DEXTROSE [Suspect]
     Active Substance: DEXTROSE MONOHYDRATE\DEXTROSE MONOHYDRATE\DOBUTAMINE HYDROCHLORIDE\DOBUTAMINE HYDROCHLORIDE
     Indication: HYPOTENSION
     Route: 065
  3. FAT EMULSION NOS [Suspect]
     Active Substance: EGG PHOSPHOLIPIDS\SAFFLOWER OIL\SOYBEAN OIL
     Dosage: 150 ML/KG
     Route: 042
  4. FAT EMULSION NOS [Suspect]
     Active Substance: EGG PHOSPHOLIPIDS\SAFFLOWER OIL\SOYBEAN OIL
     Indication: PRODUCT USED FOR UNKNOWN INDICATION
     Dosage: 0.25 ML/KG
     Route: 042
  5. VASOPRESSIN [Suspect]
     Active Substance: VASOPRESSIN
     Indication: HYPOTENSION
     Route: 065
  6. EPINEPHRINE. [Suspect]
     Active Substance: EPINEPHRINE
     Indication: HYPOTENSION
     Route: 065

REACTIONS (4)
  - Hypotension [Not Recovered/Not Resolved]
  - Cardiac arrest [Fatal]
  - No therapeutic response [Not Recovered/Not Resolved]
  - Haemodynamic instability [None]
